FAERS Safety Report 7693502-6 (Version None)
Quarter: 2011Q3

REPORT INFORMATION
  Report Type: 
  Country: None (occurrence: None)
  Receive Date: 20110819
  Receipt Date: 20110819
  Transmission Date: 20111222
  Serious: Yes (Other)
  Sender: FDA-Public Use
  Company Number: None

PATIENT
  Sex: Female

DRUGS (5)
  1. NAPROXEN [Concomitant]
  2. SEROQUEL [Suspect]
     Indication: INSOMNIA
     Dosage: 1 TABLET
     Route: 048
     Dates: start: 20101202, end: 20110731
  3. ESTROGENIC SUBSTANCE [Concomitant]
  4. ZANTAC [Concomitant]
  5. CALCIUM W/VITAMIN D [Concomitant]

REACTIONS (7)
  - BRAIN OEDEMA [None]
  - CONVULSION [None]
  - GAIT DISTURBANCE [None]
  - TREMOR [None]
  - APHASIA [None]
  - DECREASED APPETITE [None]
  - RHEUMATOID VASCULITIS [None]
